FAERS Safety Report 4682664-0 (Version None)
Quarter: 2005Q2

REPORT INFORMATION
  Report Type: 
  Country: None (occurrence: None)
  Receive Date: 20050606
  Receipt Date: 20050523
  Transmission Date: 20051028
  Serious: Yes (Hospitalization)
  Sender: FDA-Public Use
  Company Number: BE-GLAXOSMITHKLINE-B0382071A

PATIENT
  Age: 84 Year
  Sex: Male
  Weight: 63 kg

DRUGS (5)
  1. DUTASTERIDE [Suspect]
     Dosage: .5MG PER DAY
     Dates: start: 20040303
  2. ACCUPRIL [Concomitant]
     Indication: HYPERTENSION
     Route: 048
     Dates: start: 20010901
  3. CORVATARD [Concomitant]
     Indication: ANGINA PECTORIS
     Route: 048
     Dates: start: 20010901
  4. ASAFLOW [Concomitant]
     Dates: start: 20010901
  5. CEDOCARD [Concomitant]
     Indication: ANGINA PECTORIS
     Dates: start: 20010901

REACTIONS (1)
  - MYOCARDIAL INFARCTION [None]
